FAERS Safety Report 13615992 (Version 3)
Quarter: 2017Q3

REPORT INFORMATION
  Report Type: Spontaneous
  Country: JP (occurrence: JP)
  Receive Date: 20170606
  Receipt Date: 20170728
  Transmission Date: 20171127
  Serious: Yes (Death, Hospitalization, Other)
  Sender: FDA-Public Use
  Company Number: JP-BAYER-2017-102032

PATIENT
  Age: 48 Year
  Sex: Female

DRUGS (2)
  1. STIVARGA [Suspect]
     Active Substance: REGORAFENIB
     Indication: RECTAL CANCER
     Dosage: 160 MG, QD
     Route: 048
     Dates: start: 201307
  2. STIVARGA [Suspect]
     Active Substance: REGORAFENIB
     Indication: RECTAL CANCER
     Dosage: 120 MG, QD
     Route: 048

REACTIONS (12)
  - Hospitalisation [None]
  - Alopecia [None]
  - Dysphonia [None]
  - Palmar-plantar erythrodysaesthesia syndrome [None]
  - Metastases to liver [None]
  - Metastases to central nervous system [None]
  - Urticaria [None]
  - Cough [None]
  - Proteinuria [None]
  - Pyrexia [None]
  - Rectal cancer [Fatal]
  - Fatigue [None]

NARRATIVE: CASE EVENT DATE: 2013
